FAERS Safety Report 6887829-5 (Version None)
Quarter: 2010Q3

REPORT INFORMATION
  Report Type: 
  Country: None (occurrence: None)
  Receive Date: 20100730
  Receipt Date: 20100726
  Transmission Date: 20110219
  Serious: Yes (Other)
  Sender: FDA-Public Use
  Company Number: BR-ROCHE-717458

PATIENT
  Sex: Male

DRUGS (1)
  1. CLONAZEPAM [Suspect]
     Indication: PRODUCT USED FOR UNKNOWN INDICATION
     Route: 065

REACTIONS (12)
  - ASTHENIA [None]
  - COORDINATION ABNORMAL [None]
  - DECREASED APPETITE [None]
  - DYSGEUSIA [None]
  - EMOTIONAL DISORDER [None]
  - FEELING OF DESPAIR [None]
  - FORMICATION [None]
  - MOOD ALTERED [None]
  - NAUSEA [None]
  - PANIC REACTION [None]
  - PERIPHERAL COLDNESS [None]
  - TREMOR [None]
